FAERS Safety Report 17048700 (Version 1)
Quarter: 2019Q4

REPORT INFORMATION
  Report Type: Spontaneous
  Country: US (occurrence: US)
  Receive Date: 20191118
  Receipt Date: 20191118
  Transmission Date: 20200122
  Serious: Yes (Hospitalization)
  Sender: FDA-Public Use
  Company Number: None

PATIENT
  Age: 8 Week
  Sex: Female
  Weight: 4.95 kg

DRUGS (1)
  1. NIZATIDINE. [Suspect]
     Active Substance: NIZATIDINE
     Indication: GASTROOESOPHAGEAL REFLUX DISEASE
     Dosage: ?          QUANTITY:90 DOSES;?
     Route: 048
     Dates: start: 20191015, end: 20191105

REACTIONS (5)
  - Somnolence [None]
  - Drug hypersensitivity [None]
  - Unresponsive to stimuli [None]
  - Hypersomnia [None]
  - Rash [None]

NARRATIVE: CASE EVENT DATE: 20191031
